FAERS Safety Report 5864062-7 (Version None)
Quarter: 2008Q3

REPORT INFORMATION
  Report Type: 
  Country: None (occurrence: None)
  Receive Date: 20080829
  Receipt Date: 20080827
  Transmission Date: 20090109
  Serious: Yes (Hospitalization)
  Sender: FDA-Public Use
  Company Number: US-WYE-H05028708

PATIENT
  Age: 19 Year
  Sex: Female

DRUGS (2)
  1. EFFEXOR XR [Suspect]
     Indication: DEPRESSION
     Route: 048
  2. MIRTAZAPINE [Suspect]
     Indication: DEPRESSION
     Route: 048

REACTIONS (8)
  - ABNORMAL BEHAVIOUR [None]
  - FEELING ABNORMAL [None]
  - HYPOMANIA [None]
  - INAPPROPRIATE AFFECT [None]
  - INSOMNIA [None]
  - MOOD ALTERED [None]
  - MOOD SWINGS [None]
  - THINKING ABNORMAL [None]
